FAERS Safety Report 14472414 (Version 3)
Quarter: 2018Q2

REPORT INFORMATION
  Report Type: Report from Study
  Country: FR (occurrence: FR)
  Receive Date: 20180201
  Receipt Date: 20180619
  Transmission Date: 20180711
  Serious: Yes (Death, Other)
  Sender: FDA-Public Use
  Company Number: FR-BRISTOL-MYERS SQUIBB COMPANY-BMS-2018-008389

PATIENT
  Age: 62 Year
  Sex: Male

DRUGS (1)
  1. NIVOLUMAB [Suspect]
     Active Substance: NIVOLUMAB
     Indication: LUNG NEOPLASM MALIGNANT
     Dosage: 260 MG, DAY1, DAY 15
     Route: 042
     Dates: start: 20170704, end: 20171211

REACTIONS (3)
  - General physical health deterioration [Fatal]
  - Pericardial effusion [Fatal]
  - Pleural effusion [Fatal]

NARRATIVE: CASE EVENT DATE: 20171216
